FAERS Safety Report 18244872 (Version 1)
Quarter: 2020Q3

REPORT INFORMATION
  Report Type: Spontaneous
  Country: US (occurrence: US)
  Receive Date: 20200909
  Receipt Date: 20200909
  Transmission Date: 20201103
  Serious: No
  Sender: FDA-Public Use
  Company Number: US-AUROBINDO-AUR-APL-2020-036714

PATIENT
  Age: 79 Year
  Sex: Female
  Weight: 61.2 kg

DRUGS (2)
  1. ALLEGRA [Concomitant]
     Active Substance: FEXOFENADINE HYDROCHLORIDE
     Indication: HYPOAESTHESIA ORAL
     Dosage: UNK, TWO TIMES A DAY
     Route: 065
  2. ROSUVASTATIN CALCIUM TABLET 10 MG [Suspect]
     Active Substance: ROSUVASTATIN CALCIUM
     Indication: BLOOD CHOLESTEROL
     Dosage: 1 DOSAGE FORM, ONCE A DAY
     Route: 065
     Dates: start: 20200715, end: 20200716

REACTIONS (7)
  - Urticaria [Recovered/Resolved]
  - Nervousness [Not Recovered/Not Resolved]
  - Pruritus [Recovering/Resolving]
  - Hypoaesthesia oral [Not Recovered/Not Resolved]
  - Burns second degree [Not Recovered/Not Resolved]
  - Blister [Not Recovered/Not Resolved]
  - Papule [Not Recovered/Not Resolved]

NARRATIVE: CASE EVENT DATE: 20200715
